FAERS Safety Report 15764772 (Version 1)
Quarter: 2018Q4

REPORT INFORMATION
  Report Type: Report from Study
  Country: TW (occurrence: TW)
  Receive Date: 20181227
  Receipt Date: 20181227
  Transmission Date: 20190205
  Serious: Yes (Hospitalization, Other)
  Sender: FDA-Public Use
  Company Number: TW-BAYER-2018-231198

PATIENT
  Age: 52 Year
  Sex: Female
  Weight: 45 kg

DRUGS (1)
  1. BLINDED REGORAFENIB [Suspect]
     Active Substance: REGORAFENIB
     Indication: GASTROOESOPHAGEAL CANCER
     Dosage: 120 MG, QD
     Route: 048
     Dates: start: 20181031

REACTIONS (4)
  - Abdominal pain [Recovered/Resolved]
  - Metastases to peritoneum [None]
  - Pancreatitis [None]
  - Abdominal pain [Not Recovered/Not Resolved]

NARRATIVE: CASE EVENT DATE: 20181121
